FAERS Safety Report 6855401-9 (Version None)
Quarter: 2010Q3

REPORT INFORMATION
  Report Type: 
  Country: None (occurrence: None)
  Receive Date: 20100719
  Receipt Date: 20100709
  Transmission Date: 20110219
  Serious: No
  Sender: FDA-Public Use
  Company Number: US-BIOGENIDEC-2010BI023833

PATIENT
  Age: 40 Year
  Sex: Female

DRUGS (2)
  1. TYSABRI [Suspect]
     Indication: MULTIPLE SCLEROSIS
     Route: 042
     Dates: start: 20070316, end: 20091001
  2. TYSABRI [Suspect]
     Route: 042
     Dates: start: 20100401

REACTIONS (2)
  - CENTRAL NERVOUS SYSTEM LESION [None]
  - PERONEAL NERVE PALSY [None]
